FAERS Safety Report 4814974-8 (Version None)
Quarter: 2005Q4

REPORT INFORMATION
  Report Type: 
  Country: None (occurrence: None)
  Receive Date: 20051028
  Receipt Date: 20051018
  Transmission Date: 20060501
  Serious: Yes (Death)
  Sender: FDA-Public Use
  Company Number: GB-NOVOPROD-247863

PATIENT
  Sex: Male

DRUGS (1)
  1. GLUCAGEN [Suspect]
     Indication: DIABETES MELLITUS

REACTIONS (1)
  - SUDDEN DEATH [None]
